FAERS Safety Report 4796462-0 (Version None)
Quarter: 2005Q4

REPORT INFORMATION
  Report Type: 
  Country: None (occurrence: None)
  Receive Date: 20051011
  Receipt Date: 20050311
  Transmission Date: 20060501
  Serious: Yes (Hospitalization, Other)
  Sender: FDA-Public Use
  Company Number: 2005-03-1040

PATIENT
  Age: 51 Year
  Sex: Female
  Weight: 73.4827 kg

DRUGS (5)
  1. TEMODAR [Suspect]
     Indication: GLIOBLASTOMA MULTIFORME
     Dosage: 120 MG QD ORAL
     Route: 048
     Dates: start: 20050114
  2. DILANTIN [Concomitant]
  3. DECADRON [Concomitant]
  4. NORVASC [Concomitant]
  5. PAXIL [Concomitant]

REACTIONS (3)
  - ACCIDENTAL OVERDOSE [None]
  - NEUTROPENIA [None]
  - THROMBOCYTOPENIA [None]
